FAERS Safety Report 8226928-2 (Version None)
Quarter: 2012Q1

REPORT INFORMATION
  Report Type: 
  Country: None (occurrence: None)
  Receive Date: 20120322
  Receipt Date: 20111031
  Transmission Date: 20120608
  Serious: No
  Sender: FDA-Public Use
  Company Number: US-MYLANLABS-2011S1022699

PATIENT
  Age: 68 Year
  Sex: Female

DRUGS (1)
  1. DICLOFENAC SODIUM [Suspect]
     Indication: ARTHRALGIA
     Route: 048

REACTIONS (2)
  - DRUG INEFFECTIVE [None]
  - ARTHRALGIA [None]
